FAERS Safety Report 5276766-8 (Version None)
Quarter: 2007Q1

REPORT INFORMATION
  Report Type: 
  Country: None (occurrence: None)
  Receive Date: 20070327
  Receipt Date: 20070320
  Transmission Date: 20070707
  Serious: Yes (Other)
  Sender: FDA-Public Use
  Company Number: US-JNJFOC-20070304855

PATIENT
  Age: 56 Year
  Sex: Male
  Weight: 52.16 kg

DRUGS (3)
  1. EXTRA STRENGTH TYLENOL [Suspect]
  2. EXTRA STRENGTH TYLENOL [Suspect]
     Indication: HEADACHE
  3. TRAZODONE HCL [Concomitant]

REACTIONS (2)
  - DEPENDENCE [None]
  - HEPATIC ENZYME INCREASED [None]
